FAERS Safety Report 24284078 (Version 3)
Quarter: 2025Q3

REPORT INFORMATION
  Report Type: Spontaneous
  Country: US (occurrence: US)
  Receive Date: 20240905
  Receipt Date: 20250715
  Transmission Date: 20251020
  Serious: No
  Sender: CSL BEHRING
  Company Number: US-BEH-2024177993

PATIENT
  Age: 48 Year
  Sex: Male
  Weight: 102.04 kg

DRUGS (1)
  1. HIZENTRA [Suspect]
     Active Substance: HUMAN IMMUNOGLOBULIN G
     Indication: Immunodeficiency common variable
     Dosage: 10 G, QW
     Route: 058
     Dates: start: 20240705

REACTIONS (2)
  - Status migrainosus [Unknown]
  - Syringe issue [Unknown]
